FAERS Safety Report 14375434 (Version 1)
Quarter: 2018Q1

REPORT INFORMATION
  Report Type: Spontaneous
  Country: SE (occurrence: SE)
  Receive Date: 20180111
  Receipt Date: 20180111
  Transmission Date: 20180509
  Serious: Yes (Other)
  Sender: FDA-Public Use
  Company Number: SE-AUROBINDO-AUR-APL-2018-001424

PATIENT
  Age: 85 Year
  Sex: Female

DRUGS (3)
  1. ALGANEX [Suspect]
     Active Substance: TENOXICAM
     Indication: ARTHRALGIA
     Dosage: UNK
     Route: 065
  2. NAPROXEN. [Suspect]
     Active Substance: NAPROXEN
     Indication: ARTHRALGIA
     Dosage: UNK
     Route: 065
  3. OMEPRAZOL                          /00661201/ [Concomitant]
     Active Substance: OMEPRAZOLE
     Indication: PRODUCT USED FOR UNKNOWN INDICATION
     Dosage: UNK
     Route: 065

REACTIONS (4)
  - Electrolyte imbalance [Unknown]
  - Gastritis [Unknown]
  - Gastric disorder [Unknown]
  - Gastric ulcer [Unknown]
